FAERS Safety Report 11109884 (Version 1)
Quarter: 2015Q2

REPORT INFORMATION
  Report Type: Spontaneous
  Country: US (occurrence: US)
  Receive Date: 20150513
  Receipt Date: 20150513
  Transmission Date: 20150821
  Serious: No
  Sender: FDA-Public Use
  Company Number: US-PFIZER INC-2015157415

PATIENT
  Age: 64 Year
  Sex: Male
  Weight: 129 kg

DRUGS (3)
  1. SONATA [Suspect]
     Active Substance: ZALEPLON
     Indication: INSOMNIA
     Dosage: 2 DF, 1X/DAY
  2. SEROQUEL [Concomitant]
     Active Substance: QUETIAPINE FUMARATE
     Dosage: UNK
  3. TRAZODONE [Concomitant]
     Active Substance: TRAZODONE HYDROCHLORIDE
     Dosage: 200 MG AND IF REQUIRED 200 MG MORE

REACTIONS (1)
  - Pain [Unknown]
